FAERS Safety Report 19985594 (Version 2)
Quarter: 2021Q4

REPORT INFORMATION
  Report Type: Spontaneous
  Country: AU (occurrence: AU)
  Receive Date: 20211021
  Receipt Date: 20211110
  Transmission Date: 20220303
  Serious: Yes (Death)
  Sender: FDA-Public Use
  Company Number: AU-BAXTER-2021BAX032619

PATIENT
  Sex: Male

DRUGS (14)
  1. STERILE WATER [Suspect]
     Active Substance: WATER
     Indication: Parenteral nutrition
     Route: 065
     Dates: end: 20211009
  2. CERNEVIT [Suspect]
     Active Substance: VITAMINS
     Indication: Parenteral nutrition
     Route: 065
     Dates: end: 20211009
  3. SYNTHAMIN [Suspect]
     Active Substance: AMINO ACIDS
     Indication: Parenteral nutrition
     Route: 065
     Dates: end: 20211009
  4. WATER FOR INJECTION [Suspect]
     Active Substance: WATER
     Indication: Parenteral nutrition
     Route: 065
     Dates: end: 20211009
  5. DEXTROSE [Suspect]
     Active Substance: DEXTROSE
     Indication: Parenteral nutrition
     Route: 065
     Dates: end: 20211009
  6. OMEGAVEN [Suspect]
     Active Substance: FISH OIL
     Indication: Parenteral nutrition
     Route: 065
     Dates: end: 20211009
  7. POTASSIUM PHOSPHATE, MONOBASIC [Suspect]
     Active Substance: POTASSIUM PHOSPHATE, MONOBASIC
     Indication: Parenteral nutrition
     Dosage: 1 MMOL/ML
     Route: 065
     Dates: end: 20211009
  8. SODIUM ACETATE [Suspect]
     Active Substance: SODIUM ACETATE
     Indication: Parenteral nutrition
     Dosage: 2 MMOL/ML
     Route: 065
     Dates: end: 20211009
  9. SODIUM CHLORIDE [Suspect]
     Active Substance: SODIUM CHLORIDE
     Indication: Parenteral nutrition
     Dosage: 4 MMOL/ML
     Route: 065
     Dates: end: 20211009
  10. POTASSIUM CHLORIDE [Suspect]
     Active Substance: POTASSIUM CHLORIDE
     Indication: Parenteral nutrition
     Dosage: 3 MMOL/ML
     Route: 065
     Dates: end: 20211009
  11. MAGNESIUM SULFATE [Suspect]
     Active Substance: MAGNESIUM SULFATE
     Indication: Parenteral nutrition
     Dosage: 2 MMOL/ML
     Route: 065
     Dates: end: 20211009
  12. MINERALS [Suspect]
     Active Substance: MINERALS
     Indication: Parenteral nutrition
     Route: 065
     Dates: end: 20211009
  13. ZINC [Suspect]
     Active Substance: ZINC
     Indication: Parenteral nutrition
     Route: 065
     Dates: end: 20211009
  14. CALCIUM GLUCONATE [Suspect]
     Active Substance: CALCIUM GLUCONATE
     Indication: Parenteral nutrition
     Dosage: 0.22 MMOL/ML
     Route: 065
     Dates: end: 20211009

REACTIONS (1)
  - Death [Fatal]

NARRATIVE: CASE EVENT DATE: 20211009
